FAERS Safety Report 13737753 (Version 1)
Quarter: 2017Q3

REPORT INFORMATION
  Report Type: Report from Study
  Country: US (occurrence: US)
  Receive Date: 20170710
  Receipt Date: 20170710
  Transmission Date: 20171127
  Serious: No
  Sender: FDA-Public Use
  Company Number: US-SAOL THERAPEUTICS-2016SAO00580

PATIENT
  Age: 60 Year
  Sex: Male

DRUGS (9)
  1. SUFENTANIL [Suspect]
     Active Substance: SUFENTANIL
     Dosage: 3.866 ?G, \DAY
     Route: 037
  2. COMPOUNDED BACLOFEN [Suspect]
     Active Substance: BACLOFEN
     Indication: SPINAL PAIN
     Dosage: 163.5 ?G, \DAY
     Route: 037
     Dates: start: 20130801
  3. MARCAINE [Suspect]
     Active Substance: BUPIVACAINE HYDROCHLORIDE
     Dosage: 6.114 MG, \DAY
     Route: 037
  4. MARCAINE [Suspect]
     Active Substance: BUPIVACAINE HYDROCHLORIDE
     Dosage: 6.726 MG, \DAY
     Route: 037
  5. COMPOUNDED BACLOFEN [Suspect]
     Active Substance: BACLOFEN
     Dosage: 134.93 ?G, \DAY
     Route: 037
     Dates: end: 20120906
  6. SUFENTANIL [Suspect]
     Active Substance: SUFENTANIL
     Dosage: 4.257 ?G, \DAY
     Route: 037
  7. MARCAINE [Suspect]
     Active Substance: BUPIVACAINE HYDROCHLORIDE
     Dosage: 7.408 MG, \DAY
     Route: 037
  8. COMPOUNDED BACLOFEN [Suspect]
     Active Substance: BACLOFEN
     Dosage: 148.45 ?G, \DAY
     Route: 037
     Dates: start: 20120906
  9. SUFENTANIL [Suspect]
     Active Substance: SUFENTANIL
     Dosage: 3.513 ?G, \DAY
     Route: 037

REACTIONS (9)
  - Therapy non-responder [Recovered/Resolved]
  - Back disorder [Unknown]
  - Spinal column stenosis [None]
  - Device occlusion [Unknown]
  - Back pain [Recovered/Resolved]
  - Spinal osteoarthritis [Unknown]
  - Device infusion issue [Unknown]
  - Pain in extremity [Recovered/Resolved]
  - Pain [Recovered/Resolved]

NARRATIVE: CASE EVENT DATE: 20130724
